FAERS Safety Report 10011713 (Version 4)
Quarter: 2014Q2

REPORT INFORMATION
  Report Type: Report from Study
  Country: JP (occurrence: JP)
  Receive Date: 20140314
  Receipt Date: 20140530
  Transmission Date: 20141212
  Serious: Yes (Death, Other)
  Sender: FDA-Public Use
  Company Number: JP-PFIZER INC-2014073755

PATIENT
  Age: 76 Year
  Sex: Male
  Weight: 66.3 kg

DRUGS (8)
  1. NORVASC [Suspect]
     Indication: HYPERTENSION
     Dosage: 5 MG, 1X/DAY
     Route: 048
  2. ELIQUIS [Suspect]
     Indication: THROMBOSIS PROPHYLAXIS
     Dosage: ALSO USED AS CONMED
     Route: 048
     Dates: start: 20140114
  3. NU-LOTAN [Suspect]
     Dosage: 50 MG, 2X/DAY
     Route: 048
  4. CRESTOR [Suspect]
     Dosage: 2.5 MG, 1X/DAY
  5. MUCODYNE [Suspect]
     Dosage: UNK MG, 3X/DAY
  6. VEPESID [Suspect]
     Indication: LUNG NEOPLASM MALIGNANT
  7. MAINTATE [Concomitant]
     Indication: ATRIAL FIBRILLATION
     Route: 048
     Dates: end: 20140303
  8. PARIET [Concomitant]
     Indication: GASTRITIS
     Route: 048
     Dates: end: 20140303

REACTIONS (3)
  - Pneumonia [Fatal]
  - Lung neoplasm malignant [Fatal]
  - Disease progression [Fatal]
